FAERS Safety Report 5340250-3 (Version None)
Quarter: 2007Q2

REPORT INFORMATION
  Report Type: 
  Country: None (occurrence: None)
  Receive Date: 20070405
  Receipt Date: 20070118
  Transmission Date: 20071010
  Serious: No
  Sender: FDA-Public Use
  Company Number: US200701003539

PATIENT
  Age: 46 Year
  Sex: Female

DRUGS (4)
  1. CYMBALTA [Suspect]
     Indication: DEPRESSION
     Dosage: 30 MG, DAILY 1/D
     Dates: start: 20061101, end: 20070113
  2. PROZAC [Suspect]
     Indication: DEPRESSION
     Dosage: 40 MG
  3. LEVOXYL [Concomitant]
  4. CYTOMEL (LIOTHYRONIINE SODIUM) [Concomitant]

REACTIONS (11)
  - AGITATION [None]
  - ARTHRALGIA [None]
  - BLOOD PRESSURE INCREASED [None]
  - CONSTIPATION [None]
  - DRUG INEFFECTIVE [None]
  - DRUG WITHDRAWAL SYNDROME [None]
  - FLATULENCE [None]
  - INSOMNIA [None]
  - NERVOUSNESS [None]
  - PARAESTHESIA [None]
  - PARAESTHESIA ORAL [None]
